FAERS Safety Report 7550537-1 (Version None)
Quarter: 2011Q2

REPORT INFORMATION
  Report Type: 
  Country: None (occurrence: None)
  Receive Date: 20110615
  Receipt Date: 20110602
  Transmission Date: 20111010
  Serious: Yes (Hospitalization, Other)
  Sender: FDA-Public Use
  Company Number: US-CELGENEUS-163-21880-11051700

PATIENT
  Sex: Male
  Weight: 81.6 kg

DRUGS (1)
  1. REVLIMID [Suspect]
     Indication: MYELODYSPLASTIC SYNDROME
     Dosage: 10 MILLIGRAM
     Route: 048
     Dates: start: 20110318

REACTIONS (3)
  - PLATELET COUNT DECREASED [None]
  - DACRYOSTENOSIS ACQUIRED [None]
  - HAEMORRHAGE [None]
